FAERS Safety Report 20338157 (Version 1)
Quarter: 2022Q1

REPORT INFORMATION
  Report Type: Report from Study
  Country: AU (occurrence: AU)
  Receive Date: 20220115
  Receipt Date: 20220115
  Transmission Date: 20220423
  Serious: Yes (Hospitalization)
  Sender: FDA-Public Use
  Company Number: AU-ABBVIE-22K-008-4232191-00

PATIENT
  Sex: Male

DRUGS (3)
  1. SKYRIZI [Suspect]
     Active Substance: RISANKIZUMAB-RZAA
     Indication: Psoriasis
     Route: 058
     Dates: start: 20210728
  2. PARAFFIN [Concomitant]
     Active Substance: PARAFFIN
     Indication: Psoriasis
  3. METHYLPREDNISOLONE ACEPONATE [Concomitant]
     Active Substance: METHYLPREDNISOLONE ACEPONATE
     Indication: Psoriasis

REACTIONS (5)
  - Condition aggravated [Unknown]
  - Burning sensation [Unknown]
  - Scar [Unknown]
  - Mental disorder [Not Recovered/Not Resolved]
  - Psoriasis [Unknown]
